FAERS Safety Report 11722819 (Version 1)
Quarter: 2015Q4

REPORT INFORMATION
  Report Type: Spontaneous
  Country: US (occurrence: None)
  Receive Date: 20151110
  Receipt Date: 20151110
  Transmission Date: 20160304
  Serious: Yes (Hospitalization, Disabling, Other)
  Sender: FDA-Public Use
  Company Number: None

PATIENT
  Age: 39 Year
  Sex: Female
  Weight: 61.24 kg

DRUGS (17)
  1. INTER STIM BLADDER MESH NEW HIP AND HARDWARE [Concomitant]
  2. TRAZODONE [Concomitant]
     Active Substance: TRAZODONE HYDROCHLORIDE
  3. EPSOM SALT [Concomitant]
     Active Substance: MAGNESIUM SULFATE
  4. TYLENOL [Concomitant]
     Active Substance: ACETAMINOPHEN
  5. ALOSETRON HYDROCHLORIDE [Concomitant]
     Active Substance: ALOSETRON HYDROCHLORIDE
  6. LORAZAPAM [Concomitant]
     Active Substance: LORAZEPAM
  7. CETIRIZINE [Concomitant]
     Active Substance: CETIRIZINE HYDROCHLORIDE
  8. MAGNESIUM [Concomitant]
     Active Substance: MAGNESIUM
  9. LEVAQUIN [Suspect]
     Active Substance: LEVOFLOXACIN
     Indication: SINUSITIS
     Dosage: 3 DAY 1 PILL A DAY, ONCE DAILY, TAKEN BY MOUTH
     Route: 048
  10. CANNABIS [Concomitant]
     Active Substance: CANNABIS SATIVA SUBSP. INDICA TOP
  11. FLUOXETINE [Concomitant]
     Active Substance: FLUOXETINE HYDROCHLORIDE
  12. OMEPRAZOLE. [Concomitant]
     Active Substance: OMEPRAZOLE
  13. VITAMIN D [Concomitant]
     Active Substance: CHOLECALCIFEROL
  14. BUSPIRONE HCL [Concomitant]
     Active Substance: BUSPIRONE HYDROCHLORIDE
  15. DICYCLOMINE [Concomitant]
     Active Substance: DICYCLOMINE HYDROCHLORIDE
  16. IMODIUM [Concomitant]
     Active Substance: LOPERAMIDE HYDROCHLORIDE
  17. MOTRIN [Concomitant]
     Active Substance: IBUPROFEN

REACTIONS (26)
  - Myalgia [None]
  - Diarrhoea [None]
  - Urinary incontinence [None]
  - Feeling abnormal [None]
  - Abasia [None]
  - General physical health deterioration [None]
  - Tendon disorder [None]
  - Intervertebral disc protrusion [None]
  - Spinal disorder [None]
  - Lacrimation increased [None]
  - Vision blurred [None]
  - Mental disorder [None]
  - Raynaud^s phenomenon [None]
  - Migraine [None]
  - Arthralgia [None]
  - Pain [None]
  - Suicidal ideation [None]
  - Neuropathy peripheral [None]
  - Sciatica [None]
  - Cognitive disorder [None]
  - Vomiting [None]
  - Pain in extremity [None]
  - Emotional disorder [None]
  - Faecal incontinence [None]
  - Loss of employment [None]
  - Crying [None]

NARRATIVE: CASE EVENT DATE: 20061128
